FAERS Safety Report 15766571 (Version 1)
Quarter: 2018Q4

REPORT INFORMATION
  Report Type: Spontaneous
  Country: US (occurrence: US)
  Receive Date: 20181227
  Receipt Date: 20181227
  Transmission Date: 20190205
  Serious: Yes (Hospitalization)
  Sender: FDA-Public Use
  Company Number: US-TEVA-2018-US-992710

PATIENT
  Age: 4 Decade
  Sex: Male

DRUGS (1)
  1. METOCLOPRAMIDE. [Suspect]
     Active Substance: METOCLOPRAMIDE
     Indication: NAUSEA
     Dosage: ADMINISTERED TWICE PER DAY
     Route: 065

REACTIONS (2)
  - Unresponsive to stimuli [Recovering/Resolving]
  - Oculogyric crisis [Recovering/Resolving]
